FAERS Safety Report 25121981 (Version 2)
Quarter: 2025Q1

REPORT INFORMATION
  Report Type: Report from Study
  Country: US (occurrence: US)
  Receive Date: 20250326
  Receipt Date: 20250331
  Transmission Date: 20250409
  Serious: Yes (Death)
  Sender: ROCHE
  Company Number: US-ROCHE-10000242039

PATIENT
  Age: 79 Year
  Sex: Female

DRUGS (1)
  1. AVASTIN [Suspect]
     Active Substance: BEVACIZUMAB
     Indication: Embolism venous
     Dosage: INFUSE 310MG INTRAVENOUSLY EVERY 14 DAY(S)
     Route: 042

REACTIONS (2)
  - Death [Fatal]
  - Off label use [Unknown]
